FAERS Safety Report 7055191-3 (Version None)
Quarter: 2010Q4

REPORT INFORMATION
  Report Type: 
  Country: None (occurrence: None)
  Receive Date: 20101021
  Receipt Date: 20101011
  Transmission Date: 20110411
  Serious: Yes (Hospitalization, Other)
  Sender: FDA-Public Use
  Company Number: US-SANOFI-AVENTIS-2010SA040640

PATIENT
  Age: 51 Year
  Sex: Male
  Weight: 60.5 kg

DRUGS (5)
  1. ELOXATIN [Suspect]
     Indication: METASTATIC GASTRIC CANCER
     Route: 042
  2. BEVACIZUMAB [Suspect]
     Indication: METASTATIC GASTRIC CANCER
     Route: 042
     Dates: start: 20100525, end: 20100525
  3. BEVACIZUMAB [Suspect]
     Route: 042
  4. FLUOROURACIL [Suspect]
     Indication: METASTATIC GASTRIC CANCER
     Dates: start: 20100525
  5. LEUCOVORIN CALCIUM [Suspect]
     Indication: METASTATIC GASTRIC CANCER

REACTIONS (5)
  - CONFUSIONAL STATE [None]
  - HYPOXIA [None]
  - LUNG INFILTRATION [None]
  - PULMONARY EMBOLISM [None]
  - PYREXIA [None]
